FAERS Safety Report 7755291-6 (Version None)
Quarter: 2011Q3

REPORT INFORMATION
  Report Type: 
  Country: None (occurrence: None)
  Receive Date: 20110916
  Receipt Date: 20110914
  Transmission Date: 20111222
  Serious: Yes (Other)
  Sender: FDA-Public Use
  Company Number: US-PFIZER INC-2011217849

PATIENT
  Sex: Female

DRUGS (3)
  1. AMITRIPTYLINE [Concomitant]
     Indication: DEPRESSION
     Dosage: 50 MG, UNK
  2. ALPRAZOLAM [Suspect]
     Indication: ANXIETY
     Dosage: 2 MG, UNK
     Route: 048
  3. EFFEXOR XR [Concomitant]
     Indication: DEPRESSION
     Dosage: 80 MG, UNK

REACTIONS (2)
  - ANXIETY [None]
  - BIPOLAR DISORDER [None]
